FAERS Safety Report 6801828-0 (Version None)
Quarter: 2010Q2

REPORT INFORMATION
  Report Type: 
  Country: None (occurrence: None)
  Receive Date: 20100629
  Receipt Date: 20100621
  Transmission Date: 20101027
  Serious: Yes (Hospitalization, Other)
  Sender: FDA-Public Use
  Company Number: US-SANOFI-AVENTIS-2010SA036106

PATIENT
  Sex: Male

DRUGS (2)
  1. LANTUS [Suspect]
     Indication: TYPE 1 DIABETES MELLITUS
     Route: 058
  2. OPTICLICK [Suspect]
     Indication: TYPE 1 DIABETES MELLITUS

REACTIONS (5)
  - FALL [None]
  - INFECTION [None]
  - LOSS OF CONSCIOUSNESS [None]
  - PERITONEAL DIALYSIS [None]
  - UPPER LIMB FRACTURE [None]
